FAERS Safety Report 16904310 (Version 6)
Quarter: 2019Q4

REPORT INFORMATION
  Report Type: Spontaneous
  Country: CO (occurrence: CO)
  Receive Date: 20191010
  Receipt Date: 20191204
  Transmission Date: 20200122
  Serious: Yes (Hospitalization)
  Sender: FDA-Public Use
  Company Number: CO-UNITED THERAPEUTICS-UNT-2019-016743

PATIENT

DRUGS (9)
  1. REMODULIN [Suspect]
     Active Substance: TREPROSTINIL
     Indication: PULMONARY HYPERTENSION
     Dosage: 0.058 ?G/KG, CONTINUING (INFUSION RATE: 0.048 ML/H)
     Route: 058
     Dates: start: 20170923
  2. BOSENTAN. [Concomitant]
     Active Substance: BOSENTAN
     Indication: PULMONARY HYPERTENSION
     Dosage: 125 MG, Q12H
     Route: 048
     Dates: start: 2009
  3. HYDROMORPHONE [Concomitant]
     Active Substance: HYDROMORPHONE
     Indication: ANALGESIC THERAPY
     Dosage: 5 MG, CONTINUING
     Route: 041
     Dates: start: 20190928, end: 20190930
  4. TRAMADOL CHLORHYDRATE [Suspect]
     Active Substance: TRAMADOL HYDROCHLORIDE
     Indication: ANALGESIC THERAPY
     Dosage: 100 MG/ML, QD (EVERY 24 HOURS)
     Route: 048
     Dates: start: 2017, end: 20190927
  5. SILDENAFIL. [Concomitant]
     Active Substance: SILDENAFIL
     Indication: CARDIOMYOPATHY
     Dosage: 50 MG, Q12H
     Route: 048
     Dates: start: 2009
  6. SPIRONOLACTONE. [Concomitant]
     Active Substance: SPIRONOLACTONE
     Indication: PULMONARY HYPERTENSION
     Dosage: 25 MG, QD (EVERY 24 HOURS)
     Route: 048
     Dates: start: 2009
  7. FUROSEMIDA [Concomitant]
     Active Substance: FUROSEMIDE
     Indication: CARDIOMYOPATHY
     Dosage: 40 MG, QD (EVERY 24 HOURS)
     Route: 048
     Dates: start: 2009
  8. ENALAPRIL [Concomitant]
     Active Substance: ENALAPRIL
     Indication: CARDIOMYOPATHY
     Dosage: 5 MG, Q12H
     Route: 048
     Dates: start: 2009
  9. METHADONE HYDROCHLORIDE. [Concomitant]
     Active Substance: METHADONE HYDROCHLORIDE
     Indication: ANALGESIC THERAPY
     Dosage: 5 MG, Q12H
     Route: 048
     Dates: start: 20190928

REACTIONS (20)
  - Malaise [Recovered/Resolved]
  - Nausea [Recovered/Resolved]
  - Chills [Recovered/Resolved]
  - Productive cough [Recovered/Resolved]
  - Haemodynamic instability [Unknown]
  - Catheter site erythema [Recovered/Resolved]
  - Catheter site pruritus [Recovered/Resolved]
  - Catheter site warmth [Recovered/Resolved]
  - Dyspnoea [Unknown]
  - Cyanosis central [Recovered/Resolved]
  - Cyanosis [Recovered/Resolved]
  - Vomiting [Recovered/Resolved]
  - Chest pain [Unknown]
  - Intentional product misuse [Unknown]
  - Asthenia [Recovered/Resolved]
  - Infusion site pain [Unknown]
  - Catheter site induration [Recovered/Resolved]
  - Infusion site laceration [Recovered/Resolved]
  - Catheter site discharge [Recovered/Resolved]
  - Dependence [Unknown]

NARRATIVE: CASE EVENT DATE: 2017
